FAERS Safety Report 5631438-2 (Version None)
Quarter: 2008Q1

REPORT INFORMATION
  Report Type: 
  Country: None (occurrence: None)
  Receive Date: 20080214
  Receipt Date: 20080204
  Transmission Date: 20080703
  Serious: Yes (Death)
  Sender: FDA-Public Use
  Company Number: 2008-01157

PATIENT
  Age: 20 Year
  Sex: Male

DRUGS (7)
  1. CARISOPRODOL [Suspect]
  2. DIPHENHYDRAMINE HCL [Suspect]
  3. IBUPROFEN TABLETS [Suspect]
  4. OXYCODONE HCL AND ACETAMINOPHEN [Suspect]
  5. HYDROCODONE BITARTRATE + ACETAMINOPHEN [Suspect]
  6. WARFARIN SODIUM [Suspect]
  7. PREGABALIN() [Suspect]

REACTIONS (1)
  - CARDIO-RESPIRATORY ARREST [None]
